FAERS Safety Report 8203438-X (Version None)
Quarter: 2012Q1

REPORT INFORMATION
  Report Type: 
  Country: None (occurrence: None)
  Receive Date: 20120313
  Receipt Date: 20120308
  Transmission Date: 20120608
  Serious: Yes (Life-Threatening)
  Sender: FDA-Public Use
  Company Number: DE-BRISTOL-MYERS SQUIBB COMPANY-16440703

PATIENT
  Age: 68 Year
  Sex: Male
  Weight: 85 kg

DRUGS (3)
  1. CISPLATIN [Suspect]
     Indication: NON-SMALL CELL LUNG CANCER
     Dosage: DOSE: 75 MG/M2-20FEB12, REDUCED TO 60MG/M2, RECENT INF 20FEB2012.
     Route: 042
     Dates: start: 20120131
  2. GEMCITABINE [Suspect]
     Indication: NON-SMALL CELL LUNG CANCER
     Dosage: RECENT INF 1250MG/M2 ON27FEB12,1000MG/M2- DAY 1,8 OF EACH 3WEEK CYCLE
     Route: 042
     Dates: start: 20120131, end: 20120227
  3. CETUXIMAB [Suspect]
     Indication: NON-SMALL CELL LUNG CANCER
     Dosage: RECENT INF 05MAR12, 6TH INF
     Route: 042
     Dates: start: 20120131

REACTIONS (1)
  - NEUTROPENIA [None]
